FAERS Safety Report 25191947 (Version 2)
Quarter: 2025Q2

REPORT INFORMATION
  Report Type: Spontaneous
  Country: JP (occurrence: JP)
  Receive Date: 20250414
  Receipt Date: 20250428
  Transmission Date: 20250716
  Serious: No
  Sender: AMGEN
  Company Number: JP-DSJP-DS-2025-134947-

PATIENT
  Sex: Male

DRUGS (2)
  1. DENOSUMAB [Suspect]
     Active Substance: DENOSUMAB
     Indication: Rheumatoid arthritis
     Dosage: 60 MG, ONCE EVERY 6 MO
     Route: 065
     Dates: start: 202308, end: 202408
  2. DENOSUMAB [Suspect]
     Active Substance: DENOSUMAB
     Indication: Bone erosion
     Dosage: 60 MG, ONCE EVERY 6 MO
     Route: 065
     Dates: start: 2025

REACTIONS (1)
  - Physical deconditioning [Recovered/Resolved]

NARRATIVE: CASE EVENT DATE: 20250101
